FAERS Safety Report 15838781 (Version 1)
Quarter: 2019Q1

REPORT INFORMATION
  Report Type: Spontaneous
  Country: US (occurrence: US)
  Receive Date: 20190117
  Receipt Date: 20190117
  Transmission Date: 20190417
  Serious: No
  Sender: FDA-Public Use
  Company Number: US-TEVA-2018-US-991060

PATIENT
  Age: 35 Year
  Sex: Male

DRUGS (4)
  1. GARLIC. [Concomitant]
     Active Substance: GARLIC
     Route: 065
  2. SIMVASTATIN. [Concomitant]
     Active Substance: SIMVASTATIN
     Route: 065
  3. CLOZAPINE. [Suspect]
     Active Substance: CLOZAPINE
     Indication: SCHIZOPHRENIA
     Dosage: 200MG OF CLOZAPINE  ?100MG OF CLOZAPINE
     Route: 065
  4. NORVASC [Concomitant]
     Active Substance: AMLODIPINE BESYLATE
     Route: 065

REACTIONS (5)
  - Night sweats [Unknown]
  - Dental caries [Unknown]
  - Salivary hypersecretion [Unknown]
  - Pyrexia [Unknown]
  - Joint stiffness [Unknown]
